FAERS Safety Report 14604038 (Version 5)
Quarter: 2018Q4

REPORT INFORMATION
  Report Type: Spontaneous
  Country: US (occurrence: US)
  Receive Date: 20180306
  Receipt Date: 20181211
  Transmission Date: 20190204
  Serious: Yes (Hospitalization, Other)
  Sender: FDA-Public Use
  Company Number: US-009507513-1802USA012860

PATIENT
  Sex: Female
  Weight: 65.76 kg

DRUGS (3)
  1. NUVARING [Suspect]
     Active Substance: ETHINYL ESTRADIOL\ETONOGESTREL
     Indication: CONTRACEPTION
     Dosage: 0.12-0.015 MG/24 HRS, PLACE RING INSIDE VAGINA, REMOVE IN 3 WEEKS, WAIT 1 WEEK, INSERT NEW RING
     Route: 067
     Dates: start: 20111123, end: 201603
  2. XARELTO [Suspect]
     Active Substance: RIVAROXABAN
     Indication: ANTICOAGULANT THERAPY
     Dosage: 20 MG, QD
     Route: 048
     Dates: start: 20160318, end: 2016
  3. COUMADIN [Suspect]
     Active Substance: WARFARIN SODIUM
     Indication: ANTICOAGULANT THERAPY
     Dosage: UNK
     Route: 065
     Dates: start: 201603, end: 201603

REACTIONS (33)
  - Pulmonary infarction [Unknown]
  - Pelvic pain [Unknown]
  - Tinnitus [Unknown]
  - Menstruation irregular [Not Recovered/Not Resolved]
  - Complication of device insertion [Unknown]
  - Intervertebral disc protrusion [Unknown]
  - Unintended pregnancy [Recovered/Resolved]
  - Folate deficiency [Unknown]
  - Vitamin B12 deficiency [Unknown]
  - Iron deficiency anaemia [Not Recovered/Not Resolved]
  - Viral infection [Recovered/Resolved]
  - Neck pain [Unknown]
  - Dysuria [Unknown]
  - Nasal congestion [Unknown]
  - Migraine [Not Recovered/Not Resolved]
  - Pollakiuria [Unknown]
  - Viral infection [Unknown]
  - Paraesthesia [Unknown]
  - Menorrhagia [Not Recovered/Not Resolved]
  - Fibroadenoma of breast [Unknown]
  - Breast cyst [Unknown]
  - Asthenia [Unknown]
  - Pulmonary embolism [Unknown]
  - Laryngitis [Unknown]
  - Upper respiratory tract infection [Unknown]
  - Cough [Unknown]
  - Pregnancy with contraceptive device [Recovered/Resolved]
  - Hyperhomocysteinaemia [Unknown]
  - Swelling [Unknown]
  - Spinal deformity [Unknown]
  - Breast mass [Recovered/Resolved]
  - Human papilloma virus test positive [Unknown]
  - Vitamin B6 deficiency [Unknown]

NARRATIVE: CASE EVENT DATE: 2011
